FAERS Safety Report 13089633 (Version 1)
Quarter: 2017Q1

REPORT INFORMATION
  Report Type: Spontaneous
  Country: US (occurrence: US)
  Receive Date: 20170103
  Receipt Date: 20170103
  Transmission Date: 20170428
  Serious: Yes (Death, Hospitalization)
  Sender: FDA-Public Use
  Company Number: None

PATIENT
  Age: 72 Year
  Sex: Female
  Weight: 119.3 kg

DRUGS (1)
  1. WARFARIN [Suspect]
     Active Substance: WARFARIN
     Indication: DEEP VEIN THROMBOSIS
     Dosage: MG PO
     Route: 048
     Dates: start: 20161027, end: 20161209

REACTIONS (3)
  - Retroperitoneal haemorrhage [None]
  - Hypotension [None]
  - Coagulopathy [None]

NARRATIVE: CASE EVENT DATE: 20161209
